FAERS Safety Report 11136206 (Version 4)
Quarter: 2015Q3

REPORT INFORMATION
  Report Type: Spontaneous
  Country: JP (occurrence: JP)
  Receive Date: 20150526
  Receipt Date: 20150713
  Transmission Date: 20151125
  Serious: Yes (Other)
  Sender: FDA-Public Use
  Company Number: JP-PFIZER INC-2015172247

PATIENT
  Age: 61 Year
  Sex: Male
  Weight: 75 kg

DRUGS (7)
  1. LYRICA [Suspect]
     Active Substance: PREGABALIN
     Indication: SPINAL CORD INJURY CERVICAL
     Dosage: 50 MG, 2X/DAY
     Route: 048
     Dates: start: 20120206, end: 20120226
  2. LYRICA [Suspect]
     Active Substance: PREGABALIN
     Dosage: 100 MG, 2X/DAY
     Route: 048
     Dates: start: 20120301, end: 20120307
  3. LYRICA [Suspect]
     Active Substance: PREGABALIN
     Dosage: 100 MG, 2X/DAY
     Route: 048
     Dates: start: 20120402, end: 20130421
  4. LYRICA [Suspect]
     Active Substance: PREGABALIN
     Dosage: 50 MG, 2X/DAY
     Route: 048
     Dates: start: 20130422
  5. NEO VITACAIN [Concomitant]
     Indication: NERVE BLOCK
     Dosage: UNK
     Dates: start: 2007
  6. LYRICA [Suspect]
     Active Substance: PREGABALIN
     Dosage: 75 MG, 2X/DAY
     Route: 048
     Dates: start: 20120227, end: 20120228
  7. LYRICA [Suspect]
     Active Substance: PREGABALIN
     Dosage: 150 MG, 2X/DAY
     Route: 048
     Dates: start: 20120308, end: 20120401

REACTIONS (14)
  - Hyperhidrosis [Recovered/Resolved]
  - Oedema peripheral [Recovered/Resolved]
  - Soliloquy [Recovered/Resolved]
  - Speech disorder [Recovered/Resolved]
  - Hallucination [Recovered/Resolved]
  - Impaired work ability [Unknown]
  - Delusion [Recovered/Resolved]
  - Drug abuse [Unknown]
  - Euphoric mood [Recovered/Resolved]
  - Depressive symptom [Recovered/Resolved]
  - Face oedema [Recovered/Resolved]
  - Palpitations [Recovered/Resolved]
  - Abulia [Recovered/Resolved]
  - Somnolence [Unknown]

NARRATIVE: CASE EVENT DATE: 2012
